FAERS Safety Report 15097993 (Version 2)
Quarter: 2018Q3

REPORT INFORMATION
  Report Type: Spontaneous
  Country: US (occurrence: US)
  Receive Date: 20180702
  Receipt Date: 20180920
  Transmission Date: 20181010
  Serious: No
  Sender: FDA-Public Use
  Company Number: US-IGSA-SR10005824

PATIENT
  Age: 65 Year
  Sex: Female
  Weight: 58 kg

DRUGS (12)
  1. GAMUNEX?C [Suspect]
     Active Substance: HUMAN IMMUNOGLOBULIN G
     Dosage: UNK
     Route: 042
     Dates: start: 201608
  2. ARMOUR THYROID [Concomitant]
     Active Substance: THYROID, PORCINE
  3. CLONAZEPAM. [Concomitant]
     Active Substance: CLONAZEPAM
  4. SINGULAIR [Concomitant]
     Active Substance: MONTELUKAST SODIUM
  5. BENZONATATE. [Concomitant]
     Active Substance: BENZONATATE
  6. ASMANEX [Concomitant]
     Active Substance: MOMETASONE FUROATE
  7. NEURONTIN [Concomitant]
     Active Substance: GABAPENTIN
  8. PROZAC [Concomitant]
     Active Substance: FLUOXETINE HYDROCHLORIDE
  9. XOPENEX [Concomitant]
     Active Substance: LEVALBUTEROL HYDROCHLORIDE
  10. SODIUM [Concomitant]
     Active Substance: SODIUM
  11. GAMUNEX?C [Suspect]
     Active Substance: HUMAN IMMUNOGLOBULIN G
     Indication: IMMUNODEFICIENCY COMMON VARIABLE
     Dosage: 20 G, UNK
     Route: 042
     Dates: start: 20180125, end: 20180125
  12. ZETONNA [Concomitant]
     Active Substance: CICLESONIDE

REACTIONS (4)
  - Rash [Not Recovered/Not Resolved]
  - Urticaria [Not Recovered/Not Resolved]
  - Injection site reaction [Not Recovered/Not Resolved]
  - Injection site pain [Not Recovered/Not Resolved]

NARRATIVE: CASE EVENT DATE: 20180125
